FAERS Safety Report 19137509 (Version 4)
Quarter: 2022Q4

REPORT INFORMATION
  Report Type: Spontaneous
  Country: US (occurrence: US)
  Receive Date: 20210415
  Receipt Date: 20221104
  Transmission Date: 20230112
  Serious: Yes (Other)
  Sender: FDA-Public Use
  Company Number: US-SA-2021SA116219

PATIENT
  Age: 63 Year
  Sex: Male

DRUGS (1)
  1. LIBTAYO [Suspect]
     Active Substance: CEMIPLIMAB-RWLC
     Indication: Metastatic squamous cell carcinoma
     Dosage: 350 MG, Q3W
     Route: 065

REACTIONS (4)
  - Chorioretinitis [Recovering/Resolving]
  - Retinal vasculitis [Recovering/Resolving]
  - Vision blurred [Recovering/Resolving]
  - Optic neuritis [Recovering/Resolving]
